FAERS Safety Report 9358363 (Version 1)
Quarter: 2013Q2

REPORT INFORMATION
  Report Type: Report from Study
  Country: BR (occurrence: BR)
  Receive Date: 20130620
  Receipt Date: 20130620
  Transmission Date: 20140414
  Serious: Yes (Death, Hospitalization, Other)
  Sender: FDA-Public Use
  Company Number: PHHY2013BR062952

PATIENT
  Age: 90 Year
  Sex: Female

DRUGS (1)
  1. FORASEQ [Suspect]
     Indication: EMPHYSEMA
     Dosage: 2 DF, BID

REACTIONS (7)
  - Gastroenteritis [Fatal]
  - Cardiac failure [Fatal]
  - Decreased appetite [Unknown]
  - Anaemia [Unknown]
  - Diarrhoea [Unknown]
  - Asthenia [Unknown]
  - Vomiting [Unknown]
